FAERS Safety Report 21254045 (Version 12)
Quarter: 2025Q1

REPORT INFORMATION
  Report Type: Spontaneous
  Country: US (occurrence: US)
  Receive Date: 20220825
  Receipt Date: 20250210
  Transmission Date: 20250409
  Serious: Yes (Hospitalization, Other)
  Sender: PFIZER
  Company Number: US-PFIZER INC-202201090526

PATIENT
  Age: 79 Year
  Sex: Female
  Weight: 53.52 kg

DRUGS (3)
  1. PREMARIN [Suspect]
     Active Substance: ESTROGENS, CONJUGATED
     Indication: Hormone replacement therapy
     Dates: start: 1974
  2. PREMARIN [Suspect]
     Active Substance: ESTROGENS, CONJUGATED
     Indication: Oophorectomy
     Dosage: 0.625 MG, 1X/DAY (0.625 PILL)
  3. VITAMIN D3 [Concomitant]
     Active Substance: CHOLECALCIFEROL

REACTIONS (11)
  - Bronchiectasis [Unknown]
  - Haemorrhage [Unknown]
  - Drug withdrawal headache [Recovered/Resolved]
  - Chronic obstructive pulmonary disease [Recovered/Resolved]
  - Wheezing [Unknown]
  - Arthritis [Not Recovered/Not Resolved]
  - Depressed mood [Unknown]
  - Fall [Unknown]
  - Nervousness [Unknown]
  - Product dispensing error [Unknown]
  - Expired product administered [Unknown]
